FAERS Safety Report 7915831-0 (Version None)
Quarter: 2011Q4

REPORT INFORMATION
  Report Type: 
  Country: None (occurrence: None)
  Receive Date: 20111115
  Receipt Date: 20111111
  Transmission Date: 20120403
  Serious: Yes (Other)
  Sender: FDA-Public Use
  Company Number: US-PFIZER INC-2011182202

PATIENT
  Sex: Female
  Weight: 31.3 kg

DRUGS (2)
  1. GENOTROPIN [Suspect]
     Dosage: 1.6 MG, 1X/DAY
     Route: 058
  2. VITAMIN D [Concomitant]
     Dosage: 2000 IU, UNK
     Route: 048

REACTIONS (4)
  - PNEUMONIA [None]
  - VOMITING [None]
  - NAUSEA [None]
  - VISION BLURRED [None]
